FAERS Safety Report 22186693 (Version 3)
Quarter: 2024Q3

REPORT INFORMATION
  Report Type: Spontaneous
  Country: CA (occurrence: CA)
  Receive Date: 20230407
  Receipt Date: 20240905
  Transmission Date: 20241016
  Serious: Yes (Hospitalization)
  Sender: HRA PHARMA
  Company Number: CA-ORG100014127-2023000351

PATIENT
  Age: 65 Year
  Sex: Male

DRUGS (8)
  1. LYSODREN [Suspect]
     Active Substance: MITOTANE
     Indication: Adrenocortical carcinoma
     Dosage: 3 G IN THE MORNING AND 2 G IN THE EVENING
     Route: 048
     Dates: start: 20210421, end: 202111
  2. LYSODREN [Suspect]
     Active Substance: MITOTANE
     Indication: Adrenocortical carcinoma
     Dosage: 3 G BID
     Route: 048
     Dates: start: 20211104, end: 202201
  3. LYSODREN [Suspect]
     Active Substance: MITOTANE
     Indication: Adrenocortical carcinoma
     Dosage: 3 G IN THE MORNING AND 2 G IN THE EVENING
     Route: 048
     Dates: start: 202201, end: 20220514
  4. LYSODREN [Suspect]
     Active Substance: MITOTANE
     Indication: Adrenocortical carcinoma
     Dosage: 2 G IN THE MORNING AND 2 G IN THE EVENING
     Route: 048
     Dates: start: 20220515, end: 202209
  5. LYSODREN [Suspect]
     Active Substance: MITOTANE
     Indication: Adrenocortical carcinoma
     Dosage: 2 G IN THE MORNING AND 1 G IN THE EVENING
     Route: 048
     Dates: start: 202209, end: 20230331
  6. LYSODREN [Suspect]
     Active Substance: MITOTANE
     Indication: Adrenocortical carcinoma
     Dosage: 2 G IN THE MORNING AND 2 G IN THE EVENING
     Route: 048
     Dates: start: 202308
  7. LYSODREN [Suspect]
     Active Substance: MITOTANE
     Indication: Adrenocortical carcinoma
     Dosage: 1.5G IN THE MORNING AND 1G IN THE EVENING
     Dates: start: 20240820
  8. IV chemotherapy (EDP protocol) [Concomitant]
     Indication: Chemotherapy
     Dosage: FOR 3 MONTHS AND POSSIBLY EXTENDING TO 6 MONTHS
     Route: 042
     Dates: start: 20220519

REACTIONS (2)
  - COVID-19 [Unknown]
  - Adverse event [Unknown]

NARRATIVE: CASE EVENT DATE: 20230226
